FAERS Safety Report 17179138 (Version 2)
Quarter: 2020Q1

REPORT INFORMATION
  Report Type: Spontaneous
  Country: US (occurrence: US)
  Receive Date: 20191219
  Receipt Date: 20200223
  Transmission Date: 20200409
  Serious: No
  Sender: FDA-Public Use
  Company Number: US-JNJFOC-20191204576

PATIENT
  Age: 63 Year
  Sex: Female
  Weight: 70.37 kg

DRUGS (1)
  1. ZYRTEC-D [Suspect]
     Active Substance: CETIRIZINE HYDROCHLORIDE\PSEUDOEPHEDRINE HYDROCHLORIDE
     Indication: MIDDLE EAR EFFUSION
     Dosage: 1 TABLET ONCE A DAY
     Route: 048
     Dates: start: 20191125, end: 20191127

REACTIONS (5)
  - Off label use [Unknown]
  - Euphoric mood [Recovered/Resolved]
  - Vertigo [Recovered/Resolved]
  - Feeling abnormal [Recovered/Resolved]
  - Product use in unapproved indication [Unknown]

NARRATIVE: CASE EVENT DATE: 20191125
